FAERS Safety Report 18507249 (Version 1)
Quarter: 2020Q4

REPORT INFORMATION
  Report Type: Report from Study
  Country: EG (occurrence: EG)
  Receive Date: 20201116
  Receipt Date: 20201116
  Transmission Date: 20210114
  Serious: Yes (Other)
  Sender: FDA-Public Use
  Company Number: EG-BAXTER-2020BAX022832

PATIENT
  Age: 26 Year
  Sex: Male

DRUGS (3)
  1. AERRANE [Suspect]
     Active Substance: ISOFLURANE
     Indication: MAINTENANCE OF ANAESTHESIA
     Dosage: MAC 1.2%
     Route: 055
  2. PROPOFOL. [Suspect]
     Active Substance: PROPOFOL
     Indication: INDUCTION OF ANAESTHESIA
     Route: 042
  3. ATRACURIUM [Concomitant]
     Active Substance: ATRACURIUM
     Indication: MUSCLE RELAXANT THERAPY
     Route: 065

REACTIONS (1)
  - Unwanted awareness during anaesthesia [Unknown]
